FAERS Safety Report 9246550 (Version 2)
Quarter: 2013Q3

REPORT INFORMATION
  Report Type: Report from Study
  Country: DE (occurrence: DE)
  Receive Date: 20130422
  Receipt Date: 20130823
  Transmission Date: 20140515
  Serious: Yes (Hospitalization, Other)
  Sender: FDA-Public Use
  Company Number: DE-ABBOTT-13P-062-1053418-00

PATIENT
  Age: 30 Year
  Sex: Male
  Weight: 110 kg

DRUGS (1)
  1. HUMIRA [Suspect]
     Indication: CROHN^S DISEASE
     Route: 058
     Dates: start: 20120220, end: 20130211

REACTIONS (7)
  - Gastrointestinal fistula [Unknown]
  - Crohn^s disease [Recovered/Resolved]
  - Coagulopathy [Recovered/Resolved]
  - Postoperative ileus [Recovered/Resolved]
  - Anxiety [Recovered/Resolved]
  - Retroperitoneal abscess [Unknown]
  - Drug ineffective [Not Recovered/Not Resolved]
